FAERS Safety Report 20165032 (Version 1)
Quarter: 2021Q4

REPORT INFORMATION
  Report Type: Spontaneous
  Country: US (occurrence: US)
  Receive Date: 20211209
  Receipt Date: 20211209
  Transmission Date: 20220303
  Serious: Yes (Hospitalization, Other)
  Sender: FDA-Public Use
  Company Number: US-AMGEN-USASP2021192405

PATIENT
  Age: 70 Year
  Sex: Male

DRUGS (2)
  1. BEVACIZUMAB [Suspect]
     Active Substance: BEVACIZUMAB
     Indication: Colorectal cancer metastatic
     Dosage: UNK
     Route: 065
  2. OXALIPLATIN [Concomitant]
     Active Substance: OXALIPLATIN
     Indication: Colorectal cancer metastatic

REACTIONS (7)
  - Portal hypertension [Unknown]
  - Portal hypertensive gastropathy [Unknown]
  - Anaemia [Unknown]
  - Stomal varices [Unknown]
  - Varices oesophageal [Unknown]
  - Colorectal cancer metastatic [Unknown]
  - Impaired healing [Unknown]
